FAERS Safety Report 6961655-0 (Version None)
Quarter: 2010Q3

REPORT INFORMATION
  Report Type: 
  Country: None (occurrence: None)
  Receive Date: 20100901
  Receipt Date: 20100810
  Transmission Date: 20110219
  Serious: Yes (Hospitalization, Disabling, Other)
  Sender: FDA-Public Use
  Company Number: US-GENENTECH-304705

PATIENT
  Sex: Female
  Weight: 46.71 kg

DRUGS (3)
  1. RITUXAN [Suspect]
     Indication: WALDENSTROM'S MACROGLOBULINAEMIA
  2. VELCADE [Suspect]
     Indication: WALDENSTROM'S MACROGLOBULINAEMIA
     Dosage: 1.6 MG/M2, UNK
     Route: 040
     Dates: start: 20090921, end: 20091217
  3. DEXAMETHASONE [Suspect]
     Indication: WALDENSTROM'S MACROGLOBULINAEMIA

REACTIONS (7)
  - CLOSTRIDIAL INFECTION [None]
  - DECUBITUS ULCER [None]
  - GUILLAIN-BARRE SYNDROME [None]
  - MUCOCUTANEOUS RASH [None]
  - NEUROPATHY PERIPHERAL [None]
  - NEUROTOXICITY [None]
  - SEPSIS [None]
